FAERS Safety Report 7400767-4 (Version None)
Quarter: 2011Q2

REPORT INFORMATION
  Report Type: 
  Country: None (occurrence: None)
  Receive Date: 20110407
  Receipt Date: 20110330
  Transmission Date: 20111010
  Serious: Yes (Death, Life-Threatening, Hospitalization)
  Sender: FDA-Public Use
  Company Number: B0672291A

PATIENT
  Sex: Female
  Weight: 80 kg

DRUGS (7)
  1. MELPHALAN [Suspect]
     Indication: MULTIPLE MYELOMA
     Dosage: 20MG PER DAY
     Dates: start: 20100630, end: 20100703
  2. THALIDOMIDE [Suspect]
     Indication: MULTIPLE MYELOMA
     Dosage: 200MG PER DAY
     Route: 048
     Dates: start: 20100630, end: 20100714
  3. SULFAMETHOXAZOLE AND TRIMETHOPRIM [Concomitant]
     Indication: INFECTION
     Route: 042
     Dates: start: 20100715, end: 20100722
  4. VALACICLOVIR [Concomitant]
     Indication: PROPHYLAXIS
     Dosage: 500MG PER DAY
     Route: 048
     Dates: start: 20100630, end: 20100714
  5. ACETYLSALICYLIC ACID SRT [Concomitant]
     Indication: THROMBOSIS PROPHYLAXIS
     Dosage: 100MG PER DAY
     Route: 048
     Dates: start: 20100630, end: 20100714
  6. PREDNISONE [Suspect]
     Indication: MULTIPLE MYELOMA
     Dosage: 160MG PER DAY
     Dates: start: 20100630, end: 20100703
  7. SULFAMETHOXAZOLE AND TRIMETHOPRIM [Concomitant]
     Indication: PROPHYLAXIS
     Route: 048
     Dates: start: 20100630, end: 20100714

REACTIONS (7)
  - SEPTIC SHOCK [None]
  - PNEUMONIA [None]
  - DYSPNOEA [None]
  - LOWER RESPIRATORY TRACT INFECTION [None]
  - THROMBOCYTOPENIA [None]
  - PYREXIA [None]
  - NEUTROPENIA [None]
